FAERS Safety Report 6610300-2 (Version None)
Quarter: 2010Q1

REPORT INFORMATION
  Report Type: 
  Country: None (occurrence: None)
  Receive Date: 20100302
  Receipt Date: 20091015
  Transmission Date: 20100710
  Serious: No
  Sender: FDA-Public Use
  Company Number: US-TYCO HEALTHCARE/MALLINCKRODT-T200901907

PATIENT
  Age: 65 Year
  Sex: Female

DRUGS (3)
  1. TECHNESCAN HDP [Suspect]
     Indication: BONE SCAN
     Dosage: UNK
     Dates: start: 20091015, end: 20091015
  2. TECHNETIUM TC 99M MPI MDP [Suspect]
     Indication: BONE SCAN
     Dosage: UNK
     Dates: start: 20091016, end: 20091016
  3. ULTRA-TECHNEKOW [Concomitant]
     Indication: BONE SCAN
     Dosage: 25 MCI, SINGLE
     Dates: start: 20091015, end: 20091015

REACTIONS (1)
  - DRUG INEFFECTIVE [None]
